FAERS Safety Report 12719837 (Version 1)
Quarter: 2016Q3

REPORT INFORMATION
  Report Type: Other
  Country: BR (occurrence: BR)
  Receive Date: 20160907
  Receipt Date: 20160907
  Transmission Date: 20161109
  Serious: Yes (Congenital Anomaly)
  Sender: FDA-Public Use
  Company Number: BR-HETERO LABS LTD-1057105

PATIENT
  Sex: Male

DRUGS (9)
  1. TENOFOVIR\ LAMIVUDINE [Suspect]
     Active Substance: LAMIVUDINE\TENOFOVIR
     Indication: HIV INFECTION
     Dates: start: 20150505
  2. LOPINAVIR + RITONAVIR [Suspect]
     Active Substance: LOPINAVIR\RITONAVIR
     Dates: start: 20150505
  3. SULFAMETHOXAZOLE AND TRIMETHOPRIM [Concomitant]
     Active Substance: SULFAMETHOXAZOLE\TRIMETHOPRIM
  4. AZITHROMYCIN ANHYDROUS. [Concomitant]
     Active Substance: AZITHROMYCIN ANHYDROUS
  5. CEFTRIAXONE. [Concomitant]
     Active Substance: CEFTRIAXONE
  6. FERROUS SULFATE. [Concomitant]
     Active Substance: FERROUS SULFATE
  7. ZIDOVUDINE. [Suspect]
     Active Substance: ZIDOVUDINE
     Dates: start: 20160816
  8. X FOLATE [Suspect]
     Active Substance: COAL TAR
  9. METRONIDAZOLE. [Concomitant]
     Active Substance: METRONIDAZOLE

REACTIONS (4)
  - Congenital hydrocephalus [Unknown]
  - Maternal drugs affecting foetus [None]
  - Meningomyelocele [Unknown]
  - Foetal exposure during pregnancy [Unknown]
